FAERS Safety Report 13732400 (Version 3)
Quarter: 2017Q3

REPORT INFORMATION
  Report Type: Spontaneous
  Country: US (occurrence: US)
  Receive Date: 20170707
  Receipt Date: 20170808
  Transmission Date: 20171127
  Serious: Yes (Hospitalization)
  Sender: FDA-Public Use
  Company Number: US-SA-2017SA105345

PATIENT
  Age: 54 Year
  Sex: Female
  Weight: 68.06 kg

DRUGS (12)
  1. DOXEPIN [Concomitant]
     Active Substance: DOXEPIN
     Indication: PRURITUS
     Route: 048
     Dates: start: 20170323
  2. TORADOL [Concomitant]
     Active Substance: KETOROLAC TROMETHAMINE
     Route: 042
     Dates: start: 2017
  3. MORPHINE SULFATE. [Concomitant]
     Active Substance: MORPHINE SULFATE
     Route: 042
     Dates: start: 2017
  4. FAMOTIDINE. [Concomitant]
     Active Substance: FAMOTIDINE
  5. ZOFRAN [Concomitant]
     Active Substance: ONDANSETRON HYDROCHLORIDE
     Route: 065
  6. DUPIXENT [Suspect]
     Active Substance: DUPILUMAB
     Indication: DERMATITIS ATOPIC
     Route: 065
     Dates: start: 20170517, end: 20170531
  7. KEFLEX [Suspect]
     Active Substance: CEPHALEXIN
     Indication: FURUNCLE
     Route: 065
     Dates: start: 20170601
  8. ATARAX [Concomitant]
     Active Substance: HYDROXYZINE HYDROCHLORIDE
     Route: 048
     Dates: start: 2017
  9. MOTRIN [Concomitant]
     Active Substance: IBUPROFEN
     Indication: PAIN
     Dosage: EVERY 4 TO 6 HOURS
     Route: 048
  10. EPIPEN [Concomitant]
     Active Substance: EPINEPHRINE
     Route: 065
     Dates: start: 2017
  11. METOPROLOL. [Concomitant]
     Active Substance: METOPROLOL
     Dosage: STRENGTH: 25 MG
     Route: 048
     Dates: start: 2017
  12. EUCRISA [Concomitant]
     Active Substance: CRISABOROLE
     Indication: DERMATITIS ATOPIC
     Route: 065
     Dates: start: 20170323

REACTIONS (12)
  - Joint swelling [Recovered/Resolved]
  - Oropharyngeal pain [Not Recovered/Not Resolved]
  - Pyrexia [Recovering/Resolving]
  - Furuncle [Recovering/Resolving]
  - Arthralgia [Not Recovered/Not Resolved]
  - Hypokinesia [Unknown]
  - Asthenia [Not Recovered/Not Resolved]
  - Polyarthritis [Recovering/Resolving]
  - Joint stiffness [Not Recovered/Not Resolved]
  - Gait disturbance [Not Recovered/Not Resolved]
  - Dizziness [Not Recovered/Not Resolved]
  - Serum sickness [Recovering/Resolving]

NARRATIVE: CASE EVENT DATE: 201706
